FAERS Safety Report 18536193 (Version 2)
Quarter: 2020Q4

REPORT INFORMATION
  Report Type: Other
  Country: US (occurrence: US)
  Receive Date: 20201124
  Receipt Date: 20201124
  Transmission Date: 20210114
  Serious: Yes (Other)
  Sender: FDA-Public Use
  Company Number: US-ROCHE-2717445

PATIENT
  Sex: Female
  Weight: 97.61 kg

DRUGS (1)
  1. OCREVUS [Suspect]
     Active Substance: OCRELIZUMAB
     Indication: SECONDARY PROGRESSIVE MULTIPLE SCLEROSIS
     Route: 065
     Dates: start: 2017

REACTIONS (3)
  - Urinary tract infection [Recovered/Resolved]
  - Intentional product use issue [Unknown]
  - Off label use [Unknown]
